FAERS Safety Report 21378585 (Version 1)
Quarter: 2022Q3

REPORT INFORMATION
  Report Type: Spontaneous
  Country: DE (occurrence: DE)
  Receive Date: 20220927
  Receipt Date: 20220927
  Transmission Date: 20221026
  Serious: Yes (Hospitalization)
  Sender: FDA-Public Use
  Company Number: DE-ADRED-05743-01

PATIENT
  Age: 76 Year
  Sex: Male
  Weight: 82 kg

DRUGS (13)
  1. BISOPROLOL [Suspect]
     Active Substance: BISOPROLOL
     Indication: Product used for unknown indication
     Dosage: 1 DOSAGE FORMS DAILY; 2.5 MG, 0-0-1-0, UNIT DOSE : 1 DF , FREQUENCY : OD
  2. SPIRONOLACTONE [Concomitant]
     Active Substance: SPIRONOLACTONE
     Indication: Product used for unknown indication
     Dosage: 1 DOSAGE FORMS DAILY; 25 MG, 1-0-0-0, UNIT DOSE : 1 DF , FREQUENCY : OD
  3. TORSEMIDE [Concomitant]
     Active Substance: TORSEMIDE
     Indication: Product used for unknown indication
     Dosage: 200 MG, ACCORDING TO THE SCHEME
  4. PANTOPRAZOLE [Concomitant]
     Active Substance: PANTOPRAZOLE
     Indication: Product used for unknown indication
     Dosage: 1 DOSAGE FORMS DAILY; 40 MG, 0-0-0-1, UNIT DOSE : 1 DF , FREQUENCY : OD
  5. POLYETHYLENE GLYCOLS [Concomitant]
     Active Substance: POLYETHYLENE GLYCOLS
     Indication: Product used for unknown indication
     Dosage: 13.125 G, NEED
  6. PREGABALIN [Concomitant]
     Active Substance: PREGABALIN
     Indication: Product used for unknown indication
     Dosage: 1 DOSAGE FORMS DAILY; 25 MG, 0-0-1-0, CAPSULES, UNIT DOSE : 1 DF , FREQUENCY : OD
  7. LEVOTHYROXINE SODIUM [Concomitant]
     Active Substance: LEVOTHYROXINE SODIUM
     Indication: Product used for unknown indication
     Dosage: 1 DOSAGE FORMS DAILY; 25 MCG, 1-0-0-0, UNIT DOSE : 1 DF , FREQUENCY : OD
  8. INSULIN LISPRO [Concomitant]
     Active Substance: INSULIN LISPRO
     Indication: Product used for unknown indication
     Dosage: 18 DOSAGE FORMS DAILY; 1 IU, 6-6-6-0, UNIT DOSE : 6 DF , FREQUENCY : 3 TIMES A DAY
  9. INSULIN GLARGINE [Concomitant]
     Active Substance: INSULIN GLARGINE
     Indication: Product used for unknown indication
     Dosage: 12 DOSAGE FORMS DAILY; 1 IU, 0-0-0-12, CARTRIDGES, UNIT DOSE : 12 DF , FREQUENCY : OD
  10. CLOPIDOGREL [Concomitant]
     Active Substance: CLOPIDOGREL BISULFATE
     Indication: Product used for unknown indication
     Dosage: 1 DOSAGE FORMS DAILY; 75 MG, 0-1-0-0, UNIT DOSE : 1 DF , FREQUENCY : OD
  11. METAMIZOLE [Concomitant]
     Active Substance: METAMIZOLE
     Indication: Product used for unknown indication
     Dosage: 2 DOSAGE FORMS DAILY; 500 MG, 1-1-0-0, UNIT DOSE : 1 DF , FREQUENCY : BD
  12. ASPIRIN [Concomitant]
     Active Substance: ASPIRIN
     Indication: Product used for unknown indication
     Dosage: 1 DOSAGE FORMS DAILY; 100 MG, 0-1-0-0,
  13. SITAGLIPTIN [Concomitant]
     Active Substance: SITAGLIPTIN
     Indication: Product used for unknown indication
     Dosage: 1 DOSAGE FORMS DAILY; 25 MG, 1-0-0-0, UNIT DOSE : 1 DF , FREQUENCY : OD

REACTIONS (3)
  - Atrial fibrillation [Recovering/Resolving]
  - Dyspnoea [Recovering/Resolving]
  - Bradycardia [Recovering/Resolving]
